FAERS Safety Report 8975589 (Version 1)
Quarter: 2012Q4

REPORT INFORMATION
  Report Type: 
  Country: US (occurrence: US)
  Receive Date: 20121219
  Receipt Date: 20121219
  Transmission Date: 20130627
  Serious: No
  Sender: FDA-Public Use
  Company Number: US-PFIZER INC-2012320368

PATIENT
  Age: 80 Year
  Sex: Female
  Weight: 48 kg

DRUGS (6)
  1. LIPITOR [Suspect]
     Indication: HIGH CHOLESTEROL
     Dosage: 40 mg, 1x/day
  2. LIPITOR [Suspect]
     Dosage: 40 mg, 1x/day
     Route: 048
     Dates: start: 201211
  3. NIASPAN [Concomitant]
     Dosage: UNK
  4. LEVOTHYROXINE SODIUM [Concomitant]
     Dosage: UNK
  5. LISINOPRIL [Concomitant]
     Dosage: UNK
  6. ATENOLOL [Concomitant]
     Dosage: UNK

REACTIONS (1)
  - Heart rate irregular [Unknown]
